FAERS Safety Report 18517471 (Version 2)
Quarter: 2021Q2

REPORT INFORMATION
  Report Type: Spontaneous
  Country: US (occurrence: US)
  Receive Date: 20201118
  Receipt Date: 20210607
  Transmission Date: 20210717
  Serious: Yes (Other)
  Sender: FDA-Public Use
  Company Number: US-PFIZER INC-2020453986

PATIENT
  Age: 74 Year
  Sex: Female

DRUGS (2)
  1. IBRANCE [Suspect]
     Active Substance: PALBOCICLIB
     Dosage: UNK
  2. HYDROXYUREA. [Suspect]
     Active Substance: HYDROXYUREA
     Dosage: UNK

REACTIONS (3)
  - Haematopoietic neoplasm [Unknown]
  - Therapeutic response unexpected [Unknown]
  - Second primary malignancy [Unknown]
